FAERS Safety Report 9492003 (Version 1)
Quarter: 2013Q3

REPORT INFORMATION
  Report Type: Spontaneous
  Country: FR (occurrence: None)
  Receive Date: 20130827
  Receipt Date: 20130827
  Transmission Date: 20140515
  Serious: Yes (Other)
  Sender: FDA-Public Use
  Company Number: FR-ZYDUS-002044

PATIENT
  Age: 53 Year
  Sex: Male

DRUGS (6)
  1. HALOPERIDOL [Suspect]
     Indication: PSYCHOTIC DISORDER
  2. RISPERIDONE [Suspect]
     Indication: PSYCHOTIC DISORDER
  3. AMISULPRIDE [Suspect]
     Indication: PSYCHOTIC DISORDER
  4. OLANZAPINE [Suspect]
     Indication: PSYCHOTIC DISORDER
  5. QUETIAPINE [Concomitant]
  6. CLOZAPINE [Concomitant]

REACTIONS (8)
  - Hallucination [None]
  - Tardive dyskinesia [None]
  - Oculogyric crisis [None]
  - Akathisia [None]
  - Dystonia [None]
  - Tremor [None]
  - Extrapyramidal disorder [None]
  - Delusion [None]
